FAERS Safety Report 24417781 (Version 2)
Quarter: 2024Q4

REPORT INFORMATION
  Report Type: Report from Study
  Country: DE (occurrence: DE)
  Receive Date: 20241009
  Receipt Date: 20241212
  Transmission Date: 20250115
  Serious: Yes (Hospitalization)
  Sender: AMGEN
  Company Number: DE-AMGEN-DEUSL2024196023

PATIENT
  Age: 85 Year
  Sex: Female

DRUGS (2)
  1. ADALIMUMAB [Suspect]
     Active Substance: ADALIMUMAB
     Indication: Rheumatoid arthritis
     Dosage: 40 MILLIGRAM, Q2WK
     Route: 065
     Dates: start: 201902
  2. METHOTREXATE SODIUM [Concomitant]
     Active Substance: METHOTREXATE SODIUM
     Dosage: UNK
     Route: 065

REACTIONS (8)
  - Anaemia [Unknown]
  - Thyroid function test abnormal [Unknown]
  - Haemoglobin abnormal [Unknown]
  - Dizziness [Unknown]
  - Alopecia [Unknown]
  - Fall [Unknown]
  - Osteoarthritis [Unknown]
  - Contusion [Unknown]

NARRATIVE: CASE EVENT DATE: 20241117
